FAERS Safety Report 25265338 (Version 1)
Quarter: 2025Q2

REPORT INFORMATION
  Report Type: Spontaneous
  Country: US (occurrence: US)
  Receive Date: 20250502
  Receipt Date: 20250502
  Transmission Date: 20250716
  Serious: No
  Sender: PFIZER
  Company Number: US-PFIZER INC-PV202500051804

PATIENT
  Sex: Male

DRUGS (14)
  1. SONATA [Suspect]
     Active Substance: ZALEPLON
  2. CELEBREX [Concomitant]
     Active Substance: CELECOXIB
  3. CODEINE [Concomitant]
     Active Substance: CODEINE
  4. EFFEXOR [Concomitant]
     Active Substance: VENLAFAXINE HYDROCHLORIDE
  5. MIRTAZAPINE [Concomitant]
     Active Substance: MIRTAZAPINE
  6. NAPROXEN [Concomitant]
     Active Substance: NAPROXEN
  7. NORFLEX [Concomitant]
     Active Substance: ORPHENADRINE CITRATE
  8. PARAFON FORTE [Concomitant]
     Active Substance: CHLORZOXAZONE
  9. PROZAC [Concomitant]
     Active Substance: FLUOXETINE HYDROCHLORIDE
  10. SEROQUEL [Concomitant]
     Active Substance: QUETIAPINE FUMARATE
  11. SKELAXIN [Concomitant]
     Active Substance: METAXALONE
  12. VALIUM [Concomitant]
     Active Substance: DIAZEPAM
  13. WELLBUTRIN [Concomitant]
     Active Substance: BUPROPION HYDROCHLORIDE
  14. ZOLOFT [Concomitant]
     Active Substance: SERTRALINE HYDROCHLORIDE

REACTIONS (1)
  - Drug hypersensitivity [Unknown]
